FAERS Safety Report 24749988 (Version 3)
Quarter: 2025Q4

REPORT INFORMATION
  Report Type: Spontaneous
  Country: US (occurrence: US)
  Receive Date: 20241218
  Receipt Date: 20251103
  Transmission Date: 20260117
  Serious: Yes (Death, Other)
  Sender: SANOFI AVENTIS
  Company Number: US-SA-2024SA372666

PATIENT
  Sex: Female

DRUGS (30)
  1. DUPIXENT [Suspect]
     Active Substance: DUPILUMAB
     Indication: Asthma
     Dosage: 300 MG, QOW
     Route: 058
     Dates: start: 20221109
  2. FOLIC ACID [Concomitant]
     Active Substance: FOLIC ACID
     Dosage: UNK
  3. FUROSEMIDE [Concomitant]
     Active Substance: FUROSEMIDE
  4. GABAPENTIN [Concomitant]
     Active Substance: GABAPENTIN
     Dosage: UNK
  5. IBUPROFEN [Concomitant]
     Active Substance: IBUPROFEN
  6. LAMOTRIGINE [Concomitant]
     Active Substance: LAMOTRIGINE
  7. LIDOCAINE AND PRILOCAINE [Concomitant]
     Active Substance: LIDOCAINE\PRILOCAINE
  8. LIDOCAINE [Concomitant]
     Active Substance: LIDOCAINE
  9. PREGABALIN [Concomitant]
     Active Substance: PREGABALIN
  10. PROMETHAZINE [Concomitant]
     Active Substance: PROMETHAZINE HYDROCHLORIDE
  11. VENTOLIN HFA [Concomitant]
     Active Substance: ALBUTEROL SULFATE
  12. VITAMIN D [Concomitant]
     Active Substance: VITAMIN D NOS
  13. VITAMIN B12 [Concomitant]
     Active Substance: CYANOCOBALAMIN
  14. TRELEGY ELLIPTA [Concomitant]
     Active Substance: FLUTICASONE FUROATE\UMECLIDINIUM BROMIDE\VILANTEROL TRIFENATATE
  15. TRAMADOL HCL [Concomitant]
     Active Substance: TRAMADOL HYDROCHLORIDE
  16. SUCRALFATE [Concomitant]
     Active Substance: SUCRALFATE
  17. AZITHROMYCIN [Concomitant]
     Active Substance: AZITHROMYCIN
  18. CARVEDILOL [Concomitant]
     Active Substance: CARVEDILOL
  19. CLOPIDOGREL [Concomitant]
     Active Substance: CLOPIDOGREL BISULFATE
  20. DICLOFENAC [Concomitant]
     Active Substance: DICLOFENAC
  21. ENALAPRIL [Concomitant]
     Active Substance: ENALAPRIL
  22. FAMOTIDINE [Concomitant]
     Active Substance: FAMOTIDINE
  23. MECLIZINE [Concomitant]
     Active Substance: MECLIZINE HYDROCHLORIDE
  24. MONTELUKAST [Concomitant]
     Active Substance: MONTELUKAST
  25. ACETAMINOPHEN [Concomitant]
     Active Substance: ACETAMINOPHEN
  26. ATORVASTATIN [Concomitant]
     Active Substance: ATORVASTATIN
  27. ALBUTEROL SULFATE [Concomitant]
     Active Substance: ALBUTEROL SULFATE
     Dosage: UNK
  28. CODEINE [Concomitant]
     Active Substance: CODEINE
     Dosage: UNK
  29. APAP [Concomitant]
     Active Substance: ACETAMINOPHEN
     Dosage: UNK
  30. ASPIRIN [Concomitant]
     Active Substance: ASPIRIN
     Dosage: UNK

REACTIONS (3)
  - Death [Fatal]
  - Sneezing [Unknown]
  - Cough [Unknown]
